FAERS Safety Report 19364682 (Version 1)
Quarter: 2021Q2

REPORT INFORMATION
  Report Type: Spontaneous
  Country: US (occurrence: US)
  Receive Date: 20210603
  Receipt Date: 20210603
  Transmission Date: 20210717
  Serious: Yes (Other)
  Sender: FDA-Public Use
  Company Number: None

PATIENT
  Sex: Male
  Weight: 75.15 kg

DRUGS (13)
  1. XPOVIO [Suspect]
     Active Substance: SELINEXOR
     Indication: PLASMA CELL MYELOMA
     Dosage: ?          OTHER FREQUENCY:WEEKLY;?
     Route: 048
     Dates: start: 20201229
  2. NORTRIPTYLINE [Concomitant]
     Active Substance: NORTRIPTYLINE
  3. LIDODERM [Concomitant]
     Active Substance: LIDOCAINE
  4. ASPIRIN. [Concomitant]
     Active Substance: ASPIRIN
  5. REVLIMID [Concomitant]
     Active Substance: LENALIDOMIDE
  6. DARZALEX [Concomitant]
     Active Substance: DARATUMUMAB
  7. TOVIAZ [Concomitant]
     Active Substance: FESOTERODINE FUMARATE
  8. DEXAMETHASONE. [Concomitant]
     Active Substance: DEXAMETHASONE
  9. KYPROLIS [Concomitant]
     Active Substance: CARFILZOMIB
  10. POMALYST [Concomitant]
     Active Substance: POMALIDOMIDE
  11. OXYCODONE [Concomitant]
     Active Substance: OXYCODONE
  12. ZOLPIDEM TARTRATE. [Concomitant]
     Active Substance: ZOLPIDEM TARTRATE
  13. ACYCLOVIR. [Concomitant]
     Active Substance: ACYCLOVIR

REACTIONS (1)
  - Disease progression [None]
